FAERS Safety Report 11113162 (Version 1)
Quarter: 2015Q2

REPORT INFORMATION
  Report Type: Spontaneous
  Country: US (occurrence: US)
  Receive Date: 20150514
  Receipt Date: 20150514
  Transmission Date: 20150821
  Serious: No
  Sender: FDA-Public Use
  Company Number: US-JNJFOC-20150404292

PATIENT
  Age: 25 Year
  Sex: Female
  Weight: 69.85 kg

DRUGS (1)
  1. INVEGA [Suspect]
     Active Substance: PALIPERIDONE
     Indication: POST-TRAUMATIC STRESS DISORDER
     Route: 048
     Dates: start: 20141210, end: 201502

REACTIONS (5)
  - Hot flush [Unknown]
  - Menopause [Not Recovered/Not Resolved]
  - Product use issue [Unknown]
  - Amenorrhoea [Not Recovered/Not Resolved]
  - Irritability [Unknown]

NARRATIVE: CASE EVENT DATE: 201412
